FAERS Safety Report 9620872 (Version 1)
Quarter: 2013Q4

REPORT INFORMATION
  Report Type: Spontaneous
  Country: DK (occurrence: DK)
  Receive Date: 20131015
  Receipt Date: 20131015
  Transmission Date: 20140711
  Serious: Yes (Other)
  Sender: FDA-Public Use
  Company Number: PHHY2013DK113342

PATIENT
  Sex: Female

DRUGS (5)
  1. GALVUS [Suspect]
     Indication: DIABETES MELLITUS
     Dosage: 50 MG, BID
  2. PREDNISOLONE [Suspect]
     Dosage: UNK UKN, UNK
  3. PREDNISOLONE [Suspect]
     Dosage: DOSE INCREASED
  4. PREDNISOLONE [Suspect]
     Dosage: DOSE DECREASED
  5. METFORMIN [Concomitant]
     Indication: DIABETES MELLITUS
     Dosage: 2 G, DAILY

REACTIONS (4)
  - Blood glucose decreased [Unknown]
  - Malaise [Recovered/Resolved]
  - Dizziness [Recovered/Resolved]
  - Dehydration [Recovered/Resolved]
